FAERS Safety Report 17634783 (Version 2)
Quarter: 2020Q2

REPORT INFORMATION
  Report Type: Spontaneous
  Country: FR (occurrence: FR)
  Receive Date: 20200407
  Receipt Date: 20200421
  Transmission Date: 20200713
  Serious: Yes (Other)
  Sender: FDA-Public Use
  Company Number: FR-MACLEODS PHARMACEUTICALS US LTD-MAC2020026016

PATIENT

DRUGS (1)
  1. TRIAMCINOLONE ACETONIDE. [Suspect]
     Active Substance: TRIAMCINOLONE ACETONIDE
     Indication: MUSCULOSKELETAL PAIN
     Dosage: 40 MILLIGRAM, TOTAL ON THE BILATERAL SHOULDER
     Route: 014

REACTIONS (4)
  - Face oedema [Unknown]
  - Osteonecrosis [Unknown]
  - Amenorrhoea [Unknown]
  - Hirsutism [Unknown]
